FAERS Safety Report 6243850-1 (Version None)
Quarter: 2009Q2

REPORT INFORMATION
  Report Type: 
  Country: None (occurrence: None)
  Receive Date: 20090623
  Receipt Date: 20090608
  Transmission Date: 20091009
  Serious: Yes (Other)
  Sender: FDA-Public Use
  Company Number: 2009001738

PATIENT
  Age: 57 Year
  Sex: Male
  Weight: 75.3 kg

DRUGS (5)
  1. ERLOTINIB (ERLOTINIB) (TABLET) (ERLOTINIB) [Suspect]
     Indication: OESOPHAGEAL CARCINOMA
     Dosage: 100 MG, QD, ORAL
     Route: 048
     Dates: start: 20090413, end: 20090504
  2. BEVACIZUMAB [Suspect]
     Indication: OESOPHAGEAL CARCINOMA
     Dosage: 15 MG/KG
     Dates: start: 20090412, end: 20090504
  3. PACLITAXEL [Suspect]
     Indication: OESOPHAGEAL CARCINOMA
     Dosage: 200 MG/M2
     Dates: start: 20090413, end: 20090504
  4. CARBOPLATIN [Suspect]
     Indication: OESOPHAGEAL CARCINOMA
     Dosage: 5 AUC
     Dates: start: 20090413, end: 20090504
  5. FLUOROURACIL [Suspect]
     Indication: OESOPHAGEAL CARCINOMA
     Dosage: 225 MG/M2
     Dates: start: 20090413, end: 20090508

REACTIONS (3)
  - FATIGUE [None]
  - OESOPHAGITIS [None]
  - WEIGHT DECREASED [None]
